FAERS Safety Report 5373624-5 (Version None)
Quarter: 2007Q2

REPORT INFORMATION
  Report Type: 
  Country: None (occurrence: None)
  Receive Date: 20070628
  Receipt Date: 20070621
  Transmission Date: 20071010
  Serious: Yes (Hospitalization, Other)
  Sender: FDA-Public Use
  Company Number: PHBS2007BR10660

PATIENT
  Age: 43 Year
  Sex: Female
  Weight: 68 kg

DRUGS (5)
  1. DIOVAN [Suspect]
     Indication: ISCHAEMIA
     Dosage: 80 MG/DAY
     Route: 048
  2. DIOVAN [Suspect]
     Dosage: 80 MG/DAY
     Route: 048
  3. RIVOTRIL [Concomitant]
     Dosage: 2 MG, QD
     Route: 048
  4. CAPTOPRIL [Concomitant]
     Dosage: 25 MG, TID
     Route: 048
  5. CAPTOPRIL [Concomitant]
     Dosage: 50 MG, TID
     Route: 048

REACTIONS (11)
  - BLOOD PRESSURE INADEQUATELY CONTROLLED [None]
  - CEREBRAL ISCHAEMIA [None]
  - DEPRESSION [None]
  - DIZZINESS [None]
  - DYSPNOEA [None]
  - HEMIPLEGIA [None]
  - NASAL CONGESTION [None]
  - NERVOUSNESS [None]
  - PALLOR [None]
  - POLLAKIURIA [None]
  - STRESS AT WORK [None]
